FAERS Safety Report 12355035 (Version 1)
Quarter: 2016Q2

REPORT INFORMATION
  Report Type: Spontaneous
  Country: US (occurrence: None)
  Receive Date: 20160510
  Receipt Date: 20160510
  Transmission Date: 20160815
  Serious: Yes (Other)
  Sender: FDA-Public Use
  Company Number: None

PATIENT
  Age: 56 Year
  Sex: Male
  Weight: 72.58 kg

DRUGS (9)
  1. METROPROLOL TARTRATE [Concomitant]
     Active Substance: METOPROLOL TARTRATE
  2. LYRICA [Suspect]
     Active Substance: PREGABALIN
     Indication: NERVE INJURY
     Dates: start: 20160425, end: 20160428
  3. WELLBUTRIN [Concomitant]
     Active Substance: BUPROPION HYDROCHLORIDE
  4. MULTIVITAMIN [Concomitant]
     Active Substance: VITAMINS
  5. CITALOPRAM [Concomitant]
     Active Substance: CITALOPRAM HYDROBROMIDE
  6. LORATADINE. [Concomitant]
     Active Substance: LORATADINE
  7. TRAMADOL. [Concomitant]
     Active Substance: TRAMADOL
  8. MONICA [Concomitant]
  9. ASPIRIN. [Concomitant]
     Active Substance: ASPIRIN

REACTIONS (2)
  - Muscle spasms [None]
  - Dyskinesia [None]

NARRATIVE: CASE EVENT DATE: 20160426
